FAERS Safety Report 5906757-2 (Version None)
Quarter: 2008Q3

REPORT INFORMATION
  Report Type: 
  Country: None (occurrence: None)
  Receive Date: 20080930
  Receipt Date: 20080917
  Transmission Date: 20090109
  Serious: Yes (Hospitalization)
  Sender: FDA-Public Use
  Company Number: POMP-1000073

PATIENT
  Age: 67 Year
  Sex: Male
  Weight: 85 kg

DRUGS (3)
  1. MYOZYME [Suspect]
     Indication: GLYCOGEN STORAGE DISEASE TYPE II
     Dosage: 20 MG/KG, QOW, INTRAVENOUS
     Route: 042
     Dates: start: 20061107
  2. SPIRONOLACTONE [Concomitant]
  3. FLECAINIDE ACETATE [Concomitant]

REACTIONS (3)
  - NEPHROLITHIASIS [None]
  - OBSTRUCTIVE UROPATHY [None]
  - RENAL COLIC [None]
